FAERS Safety Report 7178083-8 (Version None)
Quarter: 2010Q4

REPORT INFORMATION
  Report Type: 
  Country: None (occurrence: None)
  Receive Date: 20101220
  Receipt Date: 20101214
  Transmission Date: 20110411
  Serious: Yes (Other)
  Sender: FDA-Public Use
  Company Number: A0899706A

PATIENT
  Age: 63 Year
  Sex: Female

DRUGS (8)
  1. LOVAZA [Suspect]
     Indication: LOW DENSITY LIPOPROTEIN INCREASED
     Dosage: 2TAB TWICE PER DAY
     Route: 048
     Dates: start: 20101001, end: 20101208
  2. FOSAMAX PLUS D [Concomitant]
  3. SYNTHROID [Concomitant]
  4. DESYREL [Concomitant]
  5. MULTI-VITAMIN [Concomitant]
  6. VITAMIN D [Concomitant]
  7. CALCIUM [Concomitant]
  8. TYLENOL (CAPLET) [Concomitant]

REACTIONS (3)
  - CONDITION AGGRAVATED [None]
  - VITREOUS DETACHMENT [None]
  - VITREOUS FLOATERS [None]
